FAERS Safety Report 5176818-7 (Version None)
Quarter: 2006Q4

REPORT INFORMATION
  Report Type: 
  Country: None (occurrence: None)
  Receive Date: 20061218
  Receipt Date: 20050817
  Transmission Date: 20070319
  Serious: Yes (Death, Hospitalization)
  Sender: FDA-Public Use
  Company Number: US-AMGEN-US147107

PATIENT
  Sex: Male

DRUGS (9)
  1. PANITUMUMAB [Suspect]
     Indication: COLORECTAL CANCER
     Route: 042
     Dates: start: 20050727
  2. OXALIPLATIN [Suspect]
     Route: 042
  3. AVASTIN [Concomitant]
     Route: 042
  4. PROTONIX [Concomitant]
     Route: 048
  5. LOMOTIL [Concomitant]
     Route: 048
  6. PERCOCET [Concomitant]
     Route: 048
  7. MS CONTIN [Concomitant]
     Route: 048
  8. OXYCODONE HCL [Concomitant]
     Route: 048
  9. LEUCOVORIN CALCIUM [Concomitant]
     Route: 042

REACTIONS (3)
  - COLON CANCER [None]
  - DISEASE PROGRESSION [None]
  - URINARY RETENTION [None]
